FAERS Safety Report 5834559-4 (Version None)
Quarter: 2008Q3

REPORT INFORMATION
  Report Type: 
  Country: None (occurrence: None)
  Receive Date: 20080805
  Receipt Date: 20080724
  Transmission Date: 20090109
  Serious: Yes (Other)
  Sender: FDA-Public Use
  Company Number: GB-ELI_LILLY_AND_COMPANY-GB200802002069

PATIENT
  Sex: Female
  Weight: 76.2 kg

DRUGS (3)
  1. YENTREVE [Suspect]
     Indication: STRESS URINARY INCONTINENCE
     Dosage: 40 - 20 MG (INITIALLY LESS THAN 20 MG)
     Route: 048
     Dates: start: 20060330
  2. YENTREVE [Suspect]
     Dosage: 80 MG, 2/D
     Route: 048
  3. YENTREVE [Suspect]
     Dosage: 20 MG, UNK
     Route: 048
     Dates: start: 20071004, end: 20080101

REACTIONS (15)
  - DIZZINESS [None]
  - DRUG WITHDRAWAL SYNDROME [None]
  - DYSARTHRIA [None]
  - FATIGUE [None]
  - FEELING DRUNK [None]
  - GAIT DISTURBANCE [None]
  - HEADACHE [None]
  - HYPERTENSION [None]
  - LOSS OF LIBIDO [None]
  - MOTION SICKNESS [None]
  - PALPITATIONS [None]
  - TINNITUS [None]
  - TREMOR [None]
  - VERTIGO [None]
  - VISION BLURRED [None]
